FAERS Safety Report 5097769-2 (Version None)
Quarter: 2006Q3

REPORT INFORMATION
  Report Type: 
  Country: None (occurrence: None)
  Receive Date: 20060901
  Receipt Date: 20060821
  Transmission Date: 20061208
  Serious: Yes (Other)
  Sender: FDA-Public Use
  Company Number: S06-ESP-03552-01

PATIENT
  Age: 53 Year
  Sex: Male

DRUGS (7)
  1. MONUROL [Suspect]
     Indication: CYSTITIS
     Dosage: 3 G QD PO
     Route: 048
  2. ATORVASTATIN CALCIUM [Concomitant]
  3. OMEPRAZOLE [Concomitant]
  4. PLAVIX [Concomitant]
  5. NITRODERM [Concomitant]
  6. ACETYLSALICYLIC ACID SRT [Concomitant]
  7. CARVEDILOL [Concomitant]

REACTIONS (1)
  - HEPATITIS [None]
